FAERS Safety Report 24669935 (Version 1)
Quarter: 2024Q4

REPORT INFORMATION
  Report Type: Spontaneous
  Country: US (occurrence: US)
  Receive Date: 20241127
  Receipt Date: 20241127
  Transmission Date: 20250115
  Serious: Yes (Hospitalization, Other)
  Sender: ASTELLAS
  Company Number: US-ASTELLAS-2024-AER-019534

PATIENT
  Age: 1 Year
  Sex: Female

DRUGS (9)
  1. TACROLIMUS [Suspect]
     Active Substance: TACROLIMUS
     Indication: Small intestine transplant
     Route: 048
  2. TACROLIMUS [Suspect]
     Active Substance: TACROLIMUS
     Indication: Liver transplant
     Dosage: IT WAS RESUMED LATER AT 3 MG TWICE DAILY AFTER LEVELS BECAME SUBTHERAPEUTIC AND ALSO AS DISCHARGE RE
     Route: 048
  3. TACROLIMUS [Suspect]
     Active Substance: TACROLIMUS
     Indication: Pancreas transplant
  4. SIROLIMUS [Concomitant]
     Active Substance: SIROLIMUS
     Indication: Small intestine transplant
     Route: 065
  5. SIROLIMUS [Concomitant]
     Active Substance: SIROLIMUS
     Indication: Liver transplant
     Dosage: RESTART SIROLIMUS 6 WEEKS AFTER CESAREAN DELIVERY
     Route: 065
  6. SIROLIMUS [Concomitant]
     Active Substance: SIROLIMUS
     Indication: Pancreas transplant
  7. PREDNISONE [Concomitant]
     Active Substance: PREDNISONE
     Indication: Small intestine transplant
     Dosage: ADDED TO THE PATIENT^S IMMUNOSUPPRESSIVE REGIMEN AND ALSO AS DISCHARGE REGIMEN
     Route: 065
  8. PREDNISONE [Concomitant]
     Active Substance: PREDNISONE
     Indication: Liver transplant
     Route: 065
  9. PREDNISONE [Concomitant]
     Active Substance: PREDNISONE
     Indication: Pancreas transplant
     Dosage: TRANSITIONED TO PREDNISONE 40 MG DAILY, FOLLOWED BY STEROID TAPER
     Route: 065

REACTIONS (7)
  - Acute kidney injury [Recovered/Resolved]
  - Pulmonary oedema [Recovered/Resolved]
  - Pre-eclampsia [Recovered/Resolved]
  - Hepatic enzyme increased [Recovered/Resolved]
  - Off label use [Unknown]
  - Maternal exposure during pregnancy [Unknown]
  - Premature delivery [Unknown]
